FAERS Safety Report 4307451-4 (Version None)
Quarter: 2004Q1

REPORT INFORMATION
  Report Type: 
  Country: None (occurrence: None)
  Receive Date: 20040226
  Receipt Date: 20040216
  Transmission Date: 20041129
  Serious: Yes (Hospitalization)
  Sender: FDA-Public Use
  Company Number: JP-JNJFOC-20040203090

PATIENT
  Age: 36 Year
  Sex: Male
  Weight: 68 kg

DRUGS (16)
  1. REMICADE [Suspect]
     Indication: BEHCET'S SYNDROME
     Dosage: 5 MG/KG, 1 IN 1 AS NECESSARY, INTRAVENOUS DRIP
     Route: 041
     Dates: start: 19990827, end: 19990827
  2. REMICADE [Suspect]
     Indication: BEHCET'S SYNDROME
     Dosage: 5 MG/KG, 1 IN 1 AS NECESSARY, INTRAVENOUS DRIP
     Route: 041
     Dates: start: 19990910, end: 19990910
  3. REMICADE [Suspect]
     Indication: BEHCET'S SYNDROME
     Dosage: 5 MG/KG, 1 IN 1 AS NECESSARY, INTRAVENOUS DRIP
     Route: 041
     Dates: start: 19991008, end: 19991008
  4. REMICADE [Suspect]
     Indication: BEHCET'S SYNDROME
     Dosage: 5 MG/KG, 1 IN 1 AS NECESSARY, INTRAVENOUS DRIP
     Route: 041
     Dates: start: 19991105, end: 19991105
  5. REMICADE [Suspect]
     Indication: BEHCET'S SYNDROME
     Dosage: 5 MG/KG, 1 IN 1 AS NECESSARY, INTRAVENOUS DRIP
     Route: 041
     Dates: start: 20000714, end: 20000714
  6. REMICADE [Suspect]
     Indication: BEHCET'S SYNDROME
     Dosage: 5 MG/KG, 1 IN 1 AS NECESSARY, INTRAVENOUS DRIP
     Route: 041
     Dates: start: 20000728, end: 20000728
  7. REMICADE [Suspect]
     Indication: BEHCET'S SYNDROME
     Dosage: 5 MG/KG, 1 IN 1 AS NECESSARY, INTRAVENOUS DRIP
     Route: 041
     Dates: start: 20000825, end: 20000825
  8. REMICADE [Suspect]
     Indication: BEHCET'S SYNDROME
     Dosage: 5 MG/KG, 1 IN 1 AS NECESSARY, INTRAVENOUS DRIP
     Route: 041
     Dates: start: 20001020, end: 20001020
  9. REMICADE [Suspect]
     Indication: BEHCET'S SYNDROME
     Dosage: 5 MG/KG, 1 IN 1 AS NECESSARY, INTRAVENOUS DRIP
     Route: 041
     Dates: start: 20001222, end: 20001222
  10. REMICADE [Suspect]
     Indication: BEHCET'S SYNDROME
     Dosage: 5 MG/KG, 1 IN 1 AS NECESSARY, INTRAVENOUS DRIP
     Route: 041
     Dates: start: 20010209, end: 20010209
  11. REMICADE [Suspect]
     Indication: BEHCET'S SYNDROME
     Dosage: 5 MG/KG, 1 IN 1 AS NECESSARY, INTRAVENOUS DRIP
     Route: 041
     Dates: start: 20010405, end: 20010405
  12. REMICADE [Suspect]
     Indication: BEHCET'S SYNDROME
     Dosage: 5 MG/KG, 1 IN 1 AS NECESSARY, INTRAVENOUS DRIP
     Route: 041
     Dates: start: 20010601, end: 20010601
  13. CYCLOSPORINE [Concomitant]
  14. COLCHICINE (COLCHICINE) [Concomitant]
  15. FLUMETHOLON (FLUOROMETHOLONE) DROPS [Concomitant]
  16. RINDERON (BETAMETHASONE) DROPS [Concomitant]

REACTIONS (1)
  - CLAVICLE FRACTURE [None]
